FAERS Safety Report 7386512-X (Version None)
Quarter: 2011Q1

REPORT INFORMATION
  Report Type: 
  Country: None (occurrence: None)
  Receive Date: 20110329
  Receipt Date: 20110329
  Transmission Date: 20110831
  Serious: Yes (Disabling)
  Sender: FDA-Public Use
  Company Number: None

PATIENT
  Age: 34 Year
  Sex: Female
  Weight: 72.5755 kg

DRUGS (6)
  1. WELLBUTRIN [Concomitant]
  2. YAZ [Concomitant]
  3. LYRICA [Suspect]
     Indication: FIBROMYALGIA
     Dosage: 50MG 1 PER NIGHT PO
     Route: 048
     Dates: start: 20110304, end: 20110309
  4. LYRICA [Suspect]
     Indication: PAIN
     Dosage: 50MG 1 PER NIGHT PO
     Route: 048
     Dates: start: 20110304, end: 20110309
  5. ZOLOFT [Concomitant]
  6. MOBIC [Concomitant]

REACTIONS (1)
  - DRUG HYPERSENSITIVITY [None]
